FAERS Safety Report 8102778-2 (Version None)
Quarter: 2012Q1

REPORT INFORMATION
  Report Type: 
  Country: None (occurrence: None)
  Receive Date: 20120126
  Receipt Date: 20120112
  Transmission Date: 20120608
  Serious: Yes (Hospitalization)
  Sender: FDA-Public Use
  Company Number: DSA_48845_2012

PATIENT
  Age: 34 Year
  Sex: Female
  Weight: 65 kg

DRUGS (2)
  1. VENLAFAXINE [Suspect]
     Indication: PRODUCT USED FOR UNKNOWN INDICATION
     Dosage: NOT THE PRESCRIBED AMOUNT, DF
  2. ACETAMINOPHEN [Suspect]
     Indication: PRODUCT USED FOR UNKNOWN INDICATION
     Dosage: NOT THE PRECRIVED AMOUNT, DF

REACTIONS (20)
  - SUBENDOCARDIAL ISCHAEMIA [None]
  - RENAL FAILURE ACUTE [None]
  - ELECTROCARDIOGRAM T WAVE ABNORMAL [None]
  - CONTINUOUS HAEMODIAFILTRATION [None]
  - DRUG INTERACTION [None]
  - HYPOTENSION [None]
  - PULMONARY OEDEMA [None]
  - MYDRIASIS [None]
  - TOXICITY TO VARIOUS AGENTS [None]
  - TROPONIN I INCREASED [None]
  - UNRESPONSIVE TO STIMULI [None]
  - PYREXIA [None]
  - SEROTONIN SYNDROME [None]
  - EJECTION FRACTION DECREASED [None]
  - CONVULSION [None]
  - ELECTROCARDIOGRAM ST SEGMENT DEPRESSION [None]
  - MULTIPLE DRUG OVERDOSE [None]
  - HEART RATE INCREASED [None]
  - RHABDOMYOLYSIS [None]
  - PNEUMONIA [None]
